FAERS Safety Report 6771135-3 (Version None)
Quarter: 2010Q2

REPORT INFORMATION
  Report Type: 
  Country: None (occurrence: None)
  Receive Date: 20100614
  Receipt Date: 20100614
  Transmission Date: 20101027
  Serious: Yes (Other)
  Sender: FDA-Public Use
  Company Number: None

PATIENT
  Age: 64 Year
  Sex: Female
  Weight: 72.5755 kg

DRUGS (2)
  1. CIPROFLOXACIN [Suspect]
     Indication: CYSTITIS
     Dosage: 250MG
     Dates: start: 20100507, end: 20100520
  2. CIPROFLOXACIN [Suspect]
     Indication: URINARY TRACT INFECTION
     Dosage: 250MG
     Dates: start: 20100507, end: 20100520

REACTIONS (4)
  - LIP SWELLING [None]
  - SWELLING [None]
  - TENDON DISORDER [None]
  - TENDON PAIN [None]
